FAERS Safety Report 6984779 (Version 3)
Quarter: 2014Q2

REPORT INFORMATION
  Report Type: Spontaneous
  Country: US (occurrence: US)
  Receive Date: 20090501
  Receipt Date: 20140416
  Transmission Date: 20141212
  Serious: Yes (Death, Hospitalization, Other)
  Sender: FDA-Public Use
  Company Number: US-ALEXION-A200800015

PATIENT
  Age: 64 Year
  Sex: Female

DRUGS (25)
  1. SOLIRIS [Suspect]
     Indication: PAROXYSMAL NOCTURNAL HAEMOGLOBINURIA
     Dosage: 600 MG, SINGLE
     Route: 042
     Dates: start: 20071024
  2. SOLIRIS [Suspect]
     Dosage: 600 MG, SINGLE
     Route: 042
     Dates: start: 20071031, end: 20071031
  3. SOLIRIS [Suspect]
     Dosage: 600 MG, SINGLE
     Route: 042
     Dates: start: 20071107, end: 20071107
  4. SOLIRIS [Suspect]
     Dosage: 600 MG, SINGLE
     Route: 042
     Dates: start: 20071114, end: 20071114
  5. SOLIRIS [Suspect]
     Dosage: 900 MG, SINGLE
     Route: 042
     Dates: start: 20071121, end: 20071121
  6. SOLIRIS [Suspect]
     Dosage: 900 MG, SINGLE
     Route: 042
     Dates: start: 20071205, end: 20071205
  7. SOLIRIS [Suspect]
     Dosage: 900 MG, SINGLE
     Route: 042
     Dates: start: 20071219, end: 20071219
  8. SOLIRIS [Suspect]
     Dosage: 900 MG, SINGLE
     Route: 042
     Dates: start: 20080102, end: 20080102
  9. SOLIRIS [Suspect]
     Dosage: 900 MG, SINGLE
     Route: 042
     Dates: start: 20080116, end: 20080116
  10. SOLIRIS [Suspect]
     Dosage: 900 MG, SINGLE
     Route: 042
     Dates: start: 20080130, end: 20080130
  11. DACOGEN [Suspect]
     Indication: MYELODYSPLASTIC SYNDROME
     Dates: start: 200801
  12. ZOLOFT  /01011401/ [Concomitant]
     Dosage: 100 MG IN AM, 50 MG IN PM
     Route: 048
  13. LOVASTATIN [Concomitant]
     Dosage: 20 MG, QD
     Route: 048
  14. CHEMOTHERAPEUTICS NOS [Concomitant]
     Indication: NEOPLASM MALIGNANT
  15. ASTELIN /00884002/ [Concomitant]
     Dosage: UNK, BID
     Route: 045
  16. IMITREX /01044801/ [Concomitant]
     Dosage: 50 MG, PRN
     Route: 048
  17. COENZYME Q10 [Concomitant]
     Dosage: 100 MG, QD
     Route: 048
  18. PEPCID /00706001/ [Concomitant]
     Dosage: 20 MG, QD
     Route: 048
  19. MULTIVITAMINS [Concomitant]
     Dosage: UNK, QD
     Route: 048
  20. VITAMIN C /00008001/ [Concomitant]
     Dosage: 1000 MG, QD
     Route: 048
  21. CALCIUM W/VITAMIN D NOS [Concomitant]
     Dosage: 1000/200 U QAM, 500/400 U QPM
  22. TYLENOL /00020001/ [Concomitant]
     Dosage: 1000 MG, PRN
     Route: 048
  23. GLUCOSAMINE W/CHONDROITIN SULFATE [Concomitant]
     Dosage: 3000/2400 MG, QD
     Route: 048
  24. VITAMIN B COMPLEX WITH C [Concomitant]
     Dosage: UNK, QD
     Route: 048
  25. NEULASTA [Concomitant]
     Dosage: 3 DOSES

REACTIONS (8)
  - Fungal infection [Fatal]
  - Pneumonia [Recovered/Resolved]
  - Pyrexia [Recovered/Resolved]
  - Neutrophil count decreased [Not Recovered/Not Resolved]
  - White blood cell count decreased [Not Recovered/Not Resolved]
  - Cough [Unknown]
  - Nasal congestion [Unknown]
  - Chromaturia [Unknown]
